FAERS Safety Report 6434449-2 (Version None)
Quarter: 2009Q4

REPORT INFORMATION
  Report Type: 
  Country: None (occurrence: None)
  Receive Date: 20091110
  Receipt Date: 20091029
  Transmission Date: 20100525
  Serious: Yes (Life-Threatening)
  Sender: FDA-Public Use
  Company Number: FR-PFIZER INC-2009290242

PATIENT
  Age: 93 Year
  Sex: Female

DRUGS (10)
  1. ALDACTONE [Suspect]
     Dosage: 75 MG, UNK
     Route: 048
     Dates: end: 20090921
  2. HYZAAR [Suspect]
     Dosage: 50/12.5 MG, UNK
     Route: 048
  3. ASPIRIN [Concomitant]
     Dosage: 400 MG, UNK
     Route: 048
  4. DIAMICRON [Concomitant]
  5. PROPOFAN [Concomitant]
  6. KETOPROFEN [Concomitant]
     Dosage: UNK
  7. NAABAK [Concomitant]
  8. ISKEDYL [Concomitant]
  9. EUPRESSYL [Concomitant]
  10. TOCO [Concomitant]
     Dosage: 500 MG, UNK

REACTIONS (5)
  - ATRIOVENTRICULAR BLOCK [None]
  - ELECTROCARDIOGRAM ABNORMAL [None]
  - HYPERKALAEMIA [None]
  - LOSS OF CONSCIOUSNESS [None]
  - MALAISE [None]
